FAERS Safety Report 9132258 (Version 2)
Quarter: 2013Q1

REPORT INFORMATION
  Report Type: Report from Study
  Country: KR (occurrence: KR)
  Receive Date: 20130301
  Receipt Date: 20130318
  Transmission Date: 20140127
  Serious: Yes (Hospitalization)
  Sender: FDA-Public Use
  Company Number: KR-PFIZER INC-2013068595

PATIENT
  Age: 54 Year
  Sex: Female
  Weight: 48.3 kg

DRUGS (8)
  1. CRIZOTINIB [Suspect]
     Indication: NON-SMALL CELL LUNG CANCER
     Dosage: 250 MG, 2X/DAY
     Route: 048
     Dates: start: 20110811, end: 20130222
  2. LEVETIRACETAM [Concomitant]
     Indication: DISEASE PROGRESSION
     Dosage: UNK
     Dates: start: 20120901
  3. DEXAMETHASONE [Concomitant]
     Indication: CONVULSION
     Dosage: UNK
     Dates: start: 20130124
  4. DEXAMETHASONE [Concomitant]
     Indication: NAUSEA
  5. DEXAMETHASONE [Concomitant]
     Indication: VOMITING
  6. FAMOTIDINE [Concomitant]
     Indication: CONVULSION
     Dosage: UNK
     Dates: start: 20130124
  7. FAMOTIDINE [Concomitant]
     Indication: NAUSEA
  8. FAMOTIDINE [Concomitant]
     Indication: VOMITING

REACTIONS (1)
  - Skin infection [Recovering/Resolving]
